FAERS Safety Report 6636926-8 (Version None)
Quarter: 2010Q1

REPORT INFORMATION
  Report Type: 
  Country: None (occurrence: None)
  Receive Date: 20100316
  Receipt Date: 20100309
  Transmission Date: 20100710
  Serious: Yes (Other)
  Sender: FDA-Public Use
  Company Number: IT-BRISTOL-MYERS SQUIBB COMPANY-15009525

PATIENT
  Age: 22 Year
  Sex: Male

DRUGS (5)
  1. BLEOMYCIN SULFATE [Suspect]
     Indication: HODGKIN'S DISEASE
     Route: 042
     Dates: start: 20100121
  2. VELBE [Suspect]
     Indication: HODGKIN'S DISEASE
     Route: 042
     Dates: start: 20100121
  3. DACARBAZINE [Suspect]
     Indication: HODGKIN'S DISEASE
     Route: 042
     Dates: start: 20100121
  4. ADRIBLASTINA [Suspect]
     Indication: HODGKIN'S DISEASE
     Route: 042
     Dates: start: 20100121
  5. CARDIOXANE [Concomitant]
     Indication: HODGKIN'S DISEASE
     Dates: start: 20100121, end: 20100121

REACTIONS (2)
  - AGRANULOCYTOSIS [None]
  - NEUTROPENIA [None]
